FAERS Safety Report 5859413-3 (Version None)
Quarter: 2008Q3

REPORT INFORMATION
  Report Type: 
  Country: None (occurrence: None)
  Receive Date: 20080827
  Receipt Date: 20080812
  Transmission Date: 20090109
  Serious: Yes (Hospitalization)
  Sender: FDA-Public Use
  Company Number: JP-ASTRAZENECA-2008AP06090

PATIENT
  Age: 73 Year
  Sex: Female
  Weight: 58 kg

DRUGS (12)
  1. ESOMEPRAZOLE [Suspect]
     Indication: PROPHYLAXIS AGAINST GASTROINTESTINAL ULCER
     Route: 048
     Dates: start: 20080627, end: 20080730
  2. ACTONEL [Concomitant]
     Indication: OSTEOPOROSIS
     Route: 048
  3. RIMATIL [Concomitant]
     Indication: RHEUMATOID ARTHRITIS
     Route: 048
  4. RHEUMATREX [Concomitant]
     Indication: RHEUMATOID ARTHRITIS
     Route: 048
  5. FOLIAMIN [Concomitant]
     Indication: PROPHYLAXIS
     Route: 048
  6. LORCAM [Concomitant]
     Indication: RHEUMATOID ARTHRITIS
     Route: 048
  7. ADALAT [Concomitant]
     Indication: HYPERTENSION
     Route: 048
  8. OLMETEC [Concomitant]
     Indication: HYPERTENSION
     Route: 048
  9. PREDONINE [Concomitant]
     Indication: RHEUMATOID ARTHRITIS
     Route: 048
  10. YAKUBAN [Concomitant]
     Indication: RHEUMATOID ARTHRITIS
     Dosage: OPTIMAL DOSE, AS REQUIRED
     Route: 062
  11. LOMEFLON [Concomitant]
     Indication: CATARACT
     Dosage: OPTIMAL DOSE, AS REQUIRED
     Route: 047
  12. DICLOD [Concomitant]
     Indication: CATARACT
     Dosage: OPTIMAL DOSE, AS REQUIRED
     Route: 047

REACTIONS (1)
  - DEHYDRATION [None]
